FAERS Safety Report 6499223-X (Version None)
Quarter: 2009Q4

REPORT INFORMATION
  Report Type: 
  Country: None (occurrence: None)
  Receive Date: 20091215
  Receipt Date: 20091027
  Transmission Date: 20100525
  Serious: Yes (Death)
  Sender: FDA-Public Use
  Company Number: BR-MEDIMMUNE-MEDI-0009853

PATIENT
  Sex: Female
  Weight: 0.8 kg

DRUGS (1)
  1. SYNAGIS [Suspect]
     Dates: start: 20090501, end: 20090101

REACTIONS (1)
  - DEATH [None]
